FAERS Safety Report 7465822-1 (Version None)
Quarter: 2011Q2

REPORT INFORMATION
  Report Type: 
  Country: None (occurrence: None)
  Receive Date: 20110509
  Receipt Date: 20100419
  Transmission Date: 20111010
  Serious: No
  Sender: FDA-Public Use
  Company Number: US-ALEXION-A201000445

PATIENT
  Sex: Male
  Weight: 86.621 kg

DRUGS (10)
  1. COUMADIN [Concomitant]
  2. ASPIRIN [Concomitant]
     Dosage: 81 MG, QD
     Route: 048
  3. SOLIRIS [Suspect]
     Dosage: 900 MG, Q2WKS
     Route: 042
     Dates: start: 20070719
  4. OMEPRAZOLE [Concomitant]
     Dosage: 20 MG, QD
     Route: 048
  5. FERROUS SULFATE TAB [Concomitant]
     Dosage: UNK
     Route: 048
  6. SOLIRIS [Suspect]
     Indication: PAROXYSMAL NOCTURNAL HAEMOGLOBINURIA
     Dosage: 600 MG, QWK
     Route: 042
     Dates: start: 20070621, end: 20070712
  7. WARFARIN [Concomitant]
     Dosage: UNK
     Route: 048
  8. FOLIC ACID [Concomitant]
     Dosage: UNK
     Route: 048
  9. LISINOPRIL [Concomitant]
     Dosage: 50 MG, QD
     Route: 048
  10. ATENOLOL [Concomitant]
     Dosage: 50 MG, QD
     Route: 048

REACTIONS (3)
  - ARTHRALGIA [None]
  - BLOOD URINE PRESENT [None]
  - WHITE BLOOD CELL COUNT DECREASED [None]
